FAERS Safety Report 5836013-2 (Version None)
Quarter: 2008Q3

REPORT INFORMATION
  Report Type: 
  Country: None (occurrence: None)
  Receive Date: 20080806
  Receipt Date: 20080725
  Transmission Date: 20090109
  Serious: Yes (Other)
  Sender: FDA-Public Use
  Company Number: US-PFIZER INC-2008054155

PATIENT
  Sex: Female
  Weight: 74.6 kg

DRUGS (8)
  1. LYRICA [Suspect]
     Indication: FIBROMYALGIA
     Route: 048
  2. LYRICA [Suspect]
     Indication: NEUROPATHY PERIPHERAL
  3. LYRICA [Suspect]
     Indication: NERVE INJURY
  4. HYDROMORPHONE HCL [Concomitant]
     Indication: PAIN
  5. SOMA [Concomitant]
  6. LORTAB [Concomitant]
  7. CLONAZEPAM [Concomitant]
  8. CITALOPRAM HYDROBROMIDE [Concomitant]

REACTIONS (12)
  - BLOOD URINE PRESENT [None]
  - CYSTITIS [None]
  - DIZZINESS [None]
  - HYPERTENSION [None]
  - LACRIMATION INCREASED [None]
  - PAIN [None]
  - PARAESTHESIA [None]
  - SOMNOLENCE [None]
  - SWELLING [None]
  - TOOTHACHE [None]
  - URINARY TRACT INFECTION [None]
  - VISION BLURRED [None]
